FAERS Safety Report 22252392 (Version 3)
Quarter: 2023Q4

REPORT INFORMATION
  Report Type: Spontaneous
  Country: EG (occurrence: EG)
  Receive Date: 20230426
  Receipt Date: 20231221
  Transmission Date: 20240109
  Serious: Yes (Other)
  Sender: FDA-Public Use
  Company Number: EG-ROCHE-3208202

PATIENT
  Age: 37 Year
  Sex: Female

DRUGS (7)
  1. CAPECITABINE [Suspect]
     Active Substance: CAPECITABINE
     Indication: Breast cancer metastatic
     Dosage: TWICE DAILY 2 WEEKS EVERY 3 WEEKS
     Route: 048
     Dates: start: 20201104, end: 20210120
  2. PACLITAXEL [Suspect]
     Active Substance: PACLITAXEL
     Indication: Breast cancer metastatic
     Route: 042
     Dates: start: 20210127, end: 20210925
  3. PACLITAXEL [Suspect]
     Active Substance: PACLITAXEL
     Indication: Breast cancer metastatic
     Route: 042
     Dates: start: 20211002, end: 20220102
  4. LAPATINIB [Suspect]
     Active Substance: LAPATINIB
     Indication: Breast cancer metastatic
     Dosage: DAILY DOSE: 1250 MILLIGRAM
     Route: 048
     Dates: start: 20201104, end: 20220129
  5. LAPATINIB [Suspect]
     Active Substance: LAPATINIB
     Indication: Breast cancer metastatic
     Dosage: DAILY DOSE: 1250 MILLIGRAM
     Route: 048
     Dates: start: 20201104
  6. AMOXICILLIN\CLAVULANIC ACID [Concomitant]
     Active Substance: AMOXICILLIN\CLAVULANIC ACID
     Indication: Toothache
     Dosage: 500 MG, BID?DAILY DOSE: 1000 MILLIGRAM
     Route: 048
     Dates: start: 20210911, end: 20210916
  7. GABAPENTIN [Concomitant]
     Active Substance: GABAPENTIN
     Indication: Neuropathy peripheral
     Dosage: 100 MG, BID?DAILY DOSE: 200 MILLIGRAM
     Route: 048
     Dates: start: 20211002, end: 20211030

REACTIONS (7)
  - Seizure [Unknown]
  - Confusional state [Unknown]
  - Somnolence [Unknown]
  - Headache [Unknown]
  - Disorientation [Unknown]
  - Agitation [Unknown]
  - Headache [Unknown]

NARRATIVE: CASE EVENT DATE: 20211128
